FAERS Safety Report 19519033 (Version 6)
Quarter: 2021Q3

REPORT INFORMATION
  Report Type: Spontaneous
  Country: ES (occurrence: ES)
  Receive Date: 20210712
  Receipt Date: 20210731
  Transmission Date: 20211014
  Serious: No
  Sender: FDA-Public Use
  Company Number: ES-JNJFOC-20210657590

PATIENT
  Sex: Female

DRUGS (2)
  1. SIMPONI [Suspect]
     Active Substance: GOLIMUMAB
     Indication: PRODUCT USED FOR UNKNOWN INDICATION
     Dosage: STRENGTH: 100.00 MG/ML
     Route: 058
  2. SIMPONI [Suspect]
     Active Substance: GOLIMUMAB
     Dosage: SIMPONI AUTOINJECTOR 100.00 MG/ML
     Route: 058

REACTIONS (3)
  - Needle issue [Unknown]
  - Device occlusion [Unknown]
  - Inappropriate schedule of product administration [Unknown]
